FAERS Safety Report 4586916-4 (Version None)
Quarter: 2005Q1

REPORT INFORMATION
  Report Type: 
  Country: None (occurrence: None)
  Receive Date: 20050215
  Receipt Date: 20050215
  Transmission Date: 20050727
  Serious: Yes (Other)
  Sender: FDA-Public Use
  Company Number: None

PATIENT
  Age: 54 Year
  Sex: Female
  Weight: 72.5755 kg

DRUGS (1)
  1. OXAPROZIN [Suspect]
     Indication: OSTEOARTHRITIS
     Dosage: 600MG   2 TIMES A DAY   ORAL
     Route: 048
     Dates: start: 20050129, end: 20050208

REACTIONS (5)
  - DIZZINESS [None]
  - FEELING ABNORMAL [None]
  - GAIT DISTURBANCE [None]
  - IRRITABILITY [None]
  - URTICARIA [None]
